FAERS Safety Report 6020431-6 (Version None)
Quarter: 2008Q4

REPORT INFORMATION
  Report Type: 
  Country: None (occurrence: None)
  Receive Date: 20081226
  Receipt Date: 20081212
  Transmission Date: 20090506
  Serious: Yes (Other)
  Sender: FDA-Public Use
  Company Number: CH-ROCHE-603185

PATIENT
  Sex: Female
  Weight: 3.3 kg

DRUGS (5)
  1. CELLCEPT [Suspect]
     Indication: SYSTEMIC LUPUS ERYTHEMATOSUS
     Route: 064
     Dates: start: 19990101, end: 20000701
  2. PLAQUENIL [Suspect]
     Indication: SYSTEMIC LUPUS ERYTHEMATOSUS
     Route: 064
     Dates: end: 20000701
  3. PREDNISONE [Suspect]
     Indication: SYSTEMIC LUPUS ERYTHEMATOSUS
     Route: 064
     Dates: end: 20010301
  4. CALCIMAGON-D3 [Concomitant]
     Route: 064
     Dates: end: 20000701
  5. MAGNESIOCARD [Concomitant]
     Dosage: DRUG NAME REPORTED AS MAGNESIO ORANGE.
     Route: 064

REACTIONS (4)
  - BRADYCARDIA FOETAL [None]
  - CAESAREAN SECTION [None]
  - DRUG EXPOSURE DURING PREGNANCY [None]
  - NORMAL NEWBORN [None]
